FAERS Safety Report 17325475 (Version 5)
Quarter: 2021Q3

REPORT INFORMATION
  Report Type: Spontaneous
  Country: NL (occurrence: NL)
  Receive Date: 20200127
  Receipt Date: 20210702
  Transmission Date: 20211014
  Serious: Yes (Other)
  Sender: FDA-Public Use
  Company Number: NL-TEVA-2020-NL-1173491

PATIENT
  Age: 24 Year
  Sex: Female

DRUGS (14)
  1. COLEX [SODIUM PHOSPHATE DIBASIC;SODIUM PHOSPHATE MONOBASIC] [Suspect]
     Active Substance: SODIUM PHOSPHATE, DIBASIC\SODIUM PHOSPHATE, MONOBASIC
     Indication: CONSTIPATION
     Dosage: ENEMA, WHEN NECESSARY, SINCE THE AGE OF APPROX. 14, COLEX KLYSMA
     Route: 065
  2. FORLAX [Suspect]
     Active Substance: POLYETHYLENE GLYCOL 4000
     Route: 065
  3. MOVICOLON [Suspect]
     Active Substance: POLYETHYLENE GLYCOL 3350\POTASSIUM CHLORIDE\SODIUM BICARBONATE\SODIUM CHLORIDE
     Indication: CONSTIPATION
     Dosage: SACHETS, SINCE THE AGE OF APPROX. 14
     Route: 065
  4. DULCOLAX NOS [Suspect]
     Active Substance: BISACODYL OR DOCUSATE SODIUM
     Route: 065
  5. SODIUM PHOSPHATE [Suspect]
     Active Substance: SODIUM PHOSPHATE
     Indication: CONSTIPATION
     Dosage: 40 ML BOTTLES, SINCE THE AGE OF APPROX. 14, NATRIUMFOSFAAT
     Route: 048
  6. BISACODYL 5MG TEVA AND BISACODYL 10MG TEVA [Suspect]
     Active Substance: BISACODYL
     Indication: CONSTIPATION
     Dosage: FOR ABOUT 8 YEARS, BETWEEN 6 AND 9 TABLETS AVERAGE, BISACODYL 5 MG, BISACODYL 5 MG TEVA?BISACODYL 5M
     Route: 065
     Dates: start: 2012
  7. BISACODYL 5MG TEVA AND BISACODYL 10MG TEVA [Suspect]
     Active Substance: BISACODYL
     Dosage: BISACODYL 10 MG TEVA
     Route: 065
  8. KLEAN?PREP [Suspect]
     Active Substance: ELECTROLYTES NOS\POLYETHYLENE GLYCOL 3350
     Route: 065
  9. BISACODYL 5MG TEVA AND BISACODYL 10MG TEVA [Suspect]
     Active Substance: BISACODYL
     Dosage: ON THE 2 DAYS IN BETWEEN THE PATIENT USES 2 BISACODYL, ONLY IN BAD PERIODS
     Route: 065
  10. LACTULOSE. [Suspect]
     Active Substance: LACTULOSE
     Indication: CONSTIPATION
     Dosage: SINCE THE AGE OF APPROX. 14
     Route: 065
  11. MOVIPREP [Suspect]
     Active Substance: ASCORBIC ACID\POLYETHYLENE GLYCOL 3350\POTASSIUM CHLORIDE\SODIUM ASCORBATE\SODIUM CHLORIDE\SODIUM SULFATE
     Route: 065
  12. BISACODYL 5MG TEVA AND BISACODYL 10MG TEVA [Suspect]
     Active Substance: BISACODYL
     Dosage: THE PATIENT^S RECORD DOSING IS 11
     Route: 065
  13. PHOSPHORAL [SODIUM PHOSPHATE, DIBASIC, DODECAHYDRATE\SODIUM PHOSPHATE, MONOBASIC] [Suspect]
     Active Substance: SODIUM PHOSPHATE, DIBASIC, DODECAHYDRATE\SODIUM PHOSPHATE, MONOBASIC
     Indication: CONSTIPATION
     Dosage: RINSING, APPROX. ONCE EVERY 2 MONTHS, SINCE THE AGE OF APPROX. 14
     Route: 065
  14. MICROLAX (SODIUM CITRATE/SODIUM LAURYL SULFOACETATE) [Suspect]
     Active Substance: SODIUM CITRATE\SODIUM LAURYL SULFOACETATE
     Route: 065

REACTIONS (26)
  - Adrenal disorder [Unknown]
  - Functional gastrointestinal disorder [Unknown]
  - Product residue present [Unknown]
  - Fluid retention [Unknown]
  - Pain [Unknown]
  - Dyspnoea [Unknown]
  - Drug ineffective [Unknown]
  - Product supply issue [Unknown]
  - Syncope [Unknown]
  - Headache [Unknown]
  - Swelling [Unknown]
  - Adverse event [Unknown]
  - Gastrointestinal pain [Unknown]
  - Therapeutic product effect decreased [Unknown]
  - Pulmonary oedema [Unknown]
  - Paraesthesia [Unknown]
  - Brain oedema [Unknown]
  - Skin texture abnormal [Unknown]
  - Anticipatory anxiety [Unknown]
  - Constipation [Unknown]
  - Myalgia [Unknown]
  - Musculoskeletal stiffness [Unknown]
  - Weight increased [Unknown]
  - Overdose [Unknown]
  - Muscle oedema [Unknown]
  - Ocular discomfort [Unknown]

NARRATIVE: CASE EVENT DATE: 2019
